FAERS Safety Report 8558455 (Version 2)
Quarter: 2013Q1

REPORT INFORMATION
  Report Type: Spontaneous
  Country: US (occurrence: US)
  Receive Date: 20120511
  Receipt Date: 20130312
  Transmission Date: 20140127
  Serious: Yes (Hospitalization, Other)
  Sender: FDA-Public Use
  Company Number: US-PFIZER INC-2012113000

PATIENT
  Age: 61 Year
  Sex: Female

DRUGS (3)
  1. PREMPRO [Suspect]
     Dosage: 0.45/1.5, 1 DF, 1X/DAY
  2. AVAPRO [Concomitant]
     Dosage: 300 MG, UNK
  3. AVAPRO [Concomitant]
     Dosage: 150 MG, UNK

REACTIONS (1)
  - Intracranial aneurysm [Recovering/Resolving]
